FAERS Safety Report 4294183-4 (Version None)
Quarter: 2004Q1

REPORT INFORMATION
  Report Type: 
  Country: None (occurrence: None)
  Receive Date: 20040213
  Receipt Date: 20040205
  Transmission Date: 20041129
  Serious: Yes (Hospitalization)
  Sender: FDA-Public Use
  Company Number: US-BRISTOL-MYERS SQUIBB COMPANY-12496568

PATIENT
  Age: 65 Year
  Sex: Female

DRUGS (6)
  1. CARBOPLATIN [Suspect]
     Indication: OVARIAN CANCER
     Route: 042
     Dates: start: 20031003, end: 20031003
  2. PACLITAXEL [Suspect]
     Indication: OVARIAN CANCER
     Route: 042
     Dates: start: 20031003, end: 20031003
  3. INTERFERON GAMMA [Suspect]
     Indication: OVARIAN CANCER
     Route: 058
     Dates: start: 20031003, end: 20031003
  4. SYNTHROID [Concomitant]
  5. PREMARIN [Concomitant]
  6. CELEBREX [Concomitant]

REACTIONS (1)
  - DEEP VEIN THROMBOSIS [None]
